FAERS Safety Report 4870277-7 (Version None)
Quarter: 2005Q4

REPORT INFORMATION
  Report Type: 
  Country: None (occurrence: None)
  Receive Date: 20051228
  Receipt Date: 20051212
  Transmission Date: 20060501
  Serious: Yes (Hospitalization)
  Sender: FDA-Public Use
  Company Number: RENA-10996

PATIENT
  Age: 63 Year
  Sex: Female
  Weight: 49 kg

DRUGS (15)
  1. RENAGEL [Suspect]
     Indication: HYPERPHOSPHATAEMIA
     Dosage: 0.25 G TID PO
     Route: 048
     Dates: start: 20030716, end: 20040409
  2. ALLOPURINOL [Concomitant]
  3. MEDAZEPAM [Concomitant]
  4. AMLODIPINE BESYLATE [Concomitant]
  5. VALSARTAN [Concomitant]
  6. RANITIDINE HYDROCHLORIDE [Concomitant]
  7. POLYCARBOPHIL CALCIUM [Concomitant]
  8. BARNIDIPINE [Concomitant]
  9. POVIDONE IODINE [Concomitant]
  10. KETOPROFEN [Concomitant]
  11. INDOMETHACIN [Concomitant]
  12. INDOMETACIN CREAM [Concomitant]
  13. DIFLUPREDNATE [Concomitant]
  14. RETINOL [Concomitant]
  15. HEPARINOID [Concomitant]

REACTIONS (9)
  - BACK PAIN [None]
  - DILATATION VENTRICULAR [None]
  - DIZZINESS [None]
  - GENERAL PHYSICAL HEALTH DETERIORATION [None]
  - INFUSION RELATED REACTION [None]
  - MENTAL DISORDER [None]
  - PLEURAL EFFUSION [None]
  - PRURITUS [None]
  - PYELONEPHRITIS [None]
